FAERS Safety Report 18807037 (Version 1)
Quarter: 2021Q1

REPORT INFORMATION
  Report Type: Report from Study
  Country: None (occurrence: BE)
  Receive Date: 20210128
  Receipt Date: 20210128
  Transmission Date: 20210419
  Serious: Yes (Other)
  Sender: FDA-Public Use
  Company Number: BE-ABBVIE-20K-013-3591207-00

PATIENT
  Age: 80 Year
  Sex: Male

DRUGS (6)
  1. DUODOPA [Suspect]
     Active Substance: CARBIDOPA\LEVODOPA
     Dosage: MD= 2.2 ML, CD= 3.8 ML/HR DURING 16HRS, ED= 1.0 ML
     Route: 050
     Dates: start: 20210118
  2. LEPONEX [Concomitant]
     Active Substance: CLOZAPINE
     Indication: PRODUCT USED FOR UNKNOWN INDICATION
  3. DUODOPA [Suspect]
     Active Substance: CARBIDOPA\LEVODOPA
     Indication: PARKINSON^S DISEASE
     Dosage: UNKNOWN DOSAGES
     Route: 050
     Dates: start: 20150126
  4. DUODOPA [Suspect]
     Active Substance: CARBIDOPA\LEVODOPA
     Dosage: MD= 2.7 ML, CD= 3.6 ML/HR DURING 16HRS, ED= 1.0 ML
     Route: 050
     Dates: end: 20200929
  5. DUODOPA [Suspect]
     Active Substance: CARBIDOPA\LEVODOPA
     Dosage: MD= 2.4 ML, CD= 3.4 ML/HR DURING 16HRS, ED= 1.0 ML
     Route: 050
     Dates: start: 20200929, end: 20210118
  6. QUETIAPINE. [Concomitant]
     Active Substance: QUETIAPINE
     Indication: PRODUCT USED FOR UNKNOWN INDICATION

REACTIONS (4)
  - Communication disorder [Recovering/Resolving]
  - Depressed level of consciousness [Recovering/Resolving]
  - Hallucination, visual [Unknown]
  - Mobility decreased [Recovering/Resolving]
